FAERS Safety Report 8145956-9 (Version None)
Quarter: 2012Q1

REPORT INFORMATION
  Report Type: 
  Country: None (occurrence: None)
  Receive Date: 20120217
  Receipt Date: 20110329
  Transmission Date: 20120608
  Serious: No
  Sender: FDA-Public Use
  Company Number: US-ABBOTT-11P-163-0714889-00

PATIENT
  Sex: Female
  Weight: 73.548 kg

DRUGS (3)
  1. SIMCOR [Suspect]
     Indication: FAMILIAL RISK FACTOR
     Dosage: 500/20MG
  2. SIMCOR [Suspect]
  3. ZOLPIDEM TARTRATE [Concomitant]
     Indication: PRODUCT USED FOR UNKNOWN INDICATION
     Dosage: PRN, AND 1 PER WEEK

REACTIONS (1)
  - ABDOMINAL PAIN UPPER [None]
